FAERS Safety Report 7687020-9 (Version None)
Quarter: 2011Q3

REPORT INFORMATION
  Report Type: 
  Country: None (occurrence: None)
  Receive Date: 20110816
  Receipt Date: 20110808
  Transmission Date: 20111222
  Serious: Yes (Other)
  Sender: FDA-Public Use
  Company Number: US-BAYER-201033977NA

PATIENT
  Age: 16 Year
  Sex: Female
  Weight: 72.562 kg

DRUGS (10)
  1. TOPAMAX [Concomitant]
     Indication: MIGRAINE
     Dosage: UNK
  2. LITHIUM [Concomitant]
     Indication: BIPOLAR DISORDER
  3. LEXAPRO [Concomitant]
     Indication: DEPRESSION
     Dosage: UNK
     Dates: start: 20070101, end: 20080101
  4. SEROQUEL [Concomitant]
     Indication: BIPOLAR DISORDER
  5. ALBUTEROL SULFATE AUTOHALER [Concomitant]
     Indication: ASTHMA
     Dosage: UNK
     Dates: start: 20030101, end: 20090101
  6. PROTORON [Concomitant]
     Indication: MIGRAINE
  7. ZOLOFT [Concomitant]
     Indication: DEPRESSION
  8. YAZ [Suspect]
     Indication: PRODUCT USED FOR UNKNOWN INDICATION
     Dosage: UNK
     Dates: start: 20071101, end: 20080901
  9. SEROQUEL [Concomitant]
     Indication: INSOMNIA
  10. VITAMINS NOS [Concomitant]

REACTIONS (3)
  - VOMITING [None]
  - GALLBLADDER DISORDER [None]
  - ABDOMINAL PAIN [None]
